FAERS Safety Report 6884878-8 (Version None)
Quarter: 2010Q3

REPORT INFORMATION
  Report Type: 
  Country: None (occurrence: None)
  Receive Date: 20100729
  Receipt Date: 20070824
  Transmission Date: 20110219
  Serious: No
  Sender: FDA-Public Use
  Company Number: US-PFIZER INC-2007071339

PATIENT
  Sex: Female
  Weight: 62.6 kg

DRUGS (1)
  1. CELEBREX [Suspect]
     Indication: ARTHRITIS
     Dates: start: 20070814

REACTIONS (4)
  - FLUSHING [None]
  - PRURITUS [None]
  - RASH [None]
  - SNEEZING [None]
